FAERS Safety Report 16693499 (Version 1)
Quarter: 2019Q3

REPORT INFORMATION
  Report Type: Report from Study
  Country: MX (occurrence: MX)
  Receive Date: 20190812
  Receipt Date: 20190812
  Transmission Date: 20191004
  Serious: Yes (Hospitalization, Other)
  Sender: FDA-Public Use
  Company Number: MX-ROCHE-2375932

PATIENT
  Sex: Female

DRUGS (3)
  1. TRASTUZUMAB. [Suspect]
     Active Substance: TRASTUZUMAB
     Indication: HER-2 POSITIVE BREAST CANCER
     Route: 065
     Dates: start: 20180613
  2. CAPECITABINE. [Suspect]
     Active Substance: CAPECITABINE
     Indication: HER-2 POSITIVE BREAST CANCER
     Route: 065
  3. VINORELBINA [VINORELBINE] [Concomitant]
     Dosage: TWO DAILY PILLS, ONE OF 30 AND ONE OF 20
     Route: 065

REACTIONS (13)
  - Apparent death [Unknown]
  - Malaise [Unknown]
  - Breast injury [Unknown]
  - Visual impairment [Unknown]
  - Lung neoplasm malignant [Unknown]
  - Wound infection [Unknown]
  - Neoplasm [Unknown]
  - Pain [Unknown]
  - Feeding disorder [Unknown]
  - Pyrexia [Unknown]
  - Drug ineffective [Unknown]
  - Cardiac dysfunction [Unknown]
  - Feeling abnormal [Unknown]

NARRATIVE: CASE EVENT DATE: 201907
